FAERS Safety Report 17231898 (Version 1)
Quarter: 2020Q1

REPORT INFORMATION
  Report Type: Spontaneous
  Country: HU (occurrence: HU)
  Receive Date: 20200103
  Receipt Date: 20200103
  Transmission Date: 20200409
  Serious: Yes (Life-Threatening, Hospitalization)
  Sender: FDA-Public Use
  Company Number: HU-AMERICAN REGENT INC-2019002898

PATIENT
  Age: 66 Year
  Sex: Female

DRUGS (20)
  1. FERINJECT [Suspect]
     Active Substance: FERRIC CARBOXYMALTOSE
     Indication: PRODUCT USED FOR UNKNOWN INDICATION
     Dosage: UNKNOWN
     Route: 042
  2. TEICOPLANIN [Suspect]
     Active Substance: TEICOPLANIN
     Indication: PRODUCT USED FOR UNKNOWN INDICATION
     Dosage: 800 MILLIGRAM (2 X 400 MG)
     Route: 042
     Dates: start: 20181222, end: 20181228
  3. CEFTRIAXONE. [Suspect]
     Active Substance: CEFTRIAXONE
     Indication: PRODUCT USED FOR UNKNOWN INDICATION
     Dosage: 2 GRAM, QD
     Route: 042
     Dates: start: 20181203, end: 20181226
  4. VANCOMYCIN [Suspect]
     Active Substance: VANCOMYCIN
     Indication: PRODUCT USED FOR UNKNOWN INDICATION
     Dosage: 500 MILLIGRAM, QD
     Route: 042
     Dates: start: 20181203, end: 20181213
  5. MOXIFLOXACIN. [Suspect]
     Active Substance: MOXIFLOXACIN
     Indication: PRODUCT USED FOR UNKNOWN INDICATION
     Dosage: 400 MILLIGRAM, QD
     Route: 042
     Dates: start: 20181123, end: 20181127
  6. VENOFER [Suspect]
     Active Substance: IRON SUCROSE
     Indication: PRODUCT USED FOR UNKNOWN INDICATION
     Dosage: UNKNOWN
     Route: 042
  7. CLARITHROMYCIN. [Suspect]
     Active Substance: CLARITHROMYCIN
     Indication: PRODUCT USED FOR UNKNOWN INDICATION
     Dosage: 2 X 500 MILLIGRAM (1000 MG)
     Route: 048
     Dates: start: 20181120, end: 20181123
  8. METHYLPREDNISOLONE. [Suspect]
     Active Substance: METHYLPREDNISOLONE
     Dosage: 125 MG
     Route: 051
     Dates: start: 20181207
  9. METHYLPREDNISOLONE. [Suspect]
     Active Substance: METHYLPREDNISOLONE
     Dosage: 20 MILLIGRAM, QD
     Route: 048
     Dates: start: 20181114
  10. ACETYLSALICYLIC ACID [Suspect]
     Active Substance: ASPIRIN
     Indication: PRODUCT USED FOR UNKNOWN INDICATION
     Dosage: 100 MILLIGRAM, QD (4 TIMES TOTAL)
     Route: 048
     Dates: start: 20181109, end: 20181119
  11. IMMUNOGLOBULIN                     /07494701/ [Suspect]
     Active Substance: IMMUNE GLOBULIN NOS
     Indication: PRODUCT USED FOR UNKNOWN INDICATION
     Dosage: UNK
     Route: 065
  12. PENTAGLOBIN [Suspect]
     Active Substance: HUMAN IMMUNOGLOBULIN G
     Indication: PRODUCT USED FOR UNKNOWN INDICATION
     Dosage: 500 MG/KG
     Route: 042
     Dates: start: 20181204, end: 20181207
  13. METHYLPREDNISOLONE. [Suspect]
     Active Substance: METHYLPREDNISOLONE
     Dosage: 60 MG (60 MG, 1 IN 1 D)
     Route: 065
  14. METHYLPREDNISOLONE. [Suspect]
     Active Substance: METHYLPREDNISOLONE
     Dosage: UNK
     Route: 051
     Dates: end: 20190121
  15. MALTOFER FOL [Suspect]
     Active Substance: FOLIC ACID\IRON POLYMALTOSE
     Indication: IRON DEFICIENCY ANAEMIA
     Dosage: 1 DOSAGE FORM, BID
     Route: 048
     Dates: start: 20181220, end: 20190116
  16. MEROPENEM. [Suspect]
     Active Substance: MEROPENEM
     Indication: PRODUCT USED FOR UNKNOWN INDICATION
     Dosage: 2X500 MG (1000 MILLIGRAM)
     Route: 065
     Dates: start: 20181225, end: 20181228
  17. IMMUNOGLOBULINS (IMMUNOGLOBULIN HUMAN NORMAL) [Suspect]
     Active Substance: HUMAN IMMUNOGLOBULIN G
     Indication: PRODUCT USED FOR UNKNOWN INDICATION
     Dosage: UNKNOWN
     Route: 042
  18. METHYLPREDNISOLONE. [Suspect]
     Active Substance: METHYLPREDNISOLONE
     Indication: RASH
     Dosage: 80 MG 2 DAYS
     Route: 051
     Dates: start: 20181120
  19. METRONIDAZOLE. [Suspect]
     Active Substance: METRONIDAZOLE
     Indication: PRODUCT USED FOR UNKNOWN INDICATION
     Dosage: 1000 MILLIGRAM, QD (2X500 MG)
     Route: 042
  20. FOLIC ACID. [Suspect]
     Active Substance: FOLIC ACID
     Indication: PRODUCT USED FOR UNKNOWN INDICATION
     Dosage: UNKNOWN
     Route: 065

REACTIONS (5)
  - Disease progression [Unknown]
  - Skin ulcer [Recovered/Resolved]
  - Acinetobacter infection [Recovered/Resolved]
  - Enterococcal infection [Recovered/Resolved]
  - Stenotrophomonas infection [Recovered/Resolved]

NARRATIVE: CASE EVENT DATE: 20181207
